FAERS Safety Report 25753902 (Version 1)
Quarter: 2025Q3

REPORT INFORMATION
  Report Type: Spontaneous
  Country: KR (occurrence: KR)
  Receive Date: 20250903
  Receipt Date: 20250903
  Transmission Date: 20251021
  Serious: Yes (Death, Hospitalization, Other)
  Sender: BEIGENE
  Company Number: KR-CELLTRION INC.-2025KR020665

PATIENT

DRUGS (14)
  1. BRUKINSA [Suspect]
     Active Substance: ZANUBRUTINIB
     Indication: Diffuse large B-cell lymphoma
  2. BRUKINSA [Suspect]
     Active Substance: ZANUBRUTINIB
  3. TRUXIMA [Suspect]
     Active Substance: RITUXIMAB-ABBS
     Indication: Diffuse large B-cell lymphoma
  4. ETOPOSIDE [Suspect]
     Active Substance: ETOPOSIDE
     Indication: Diffuse large B-cell lymphoma
  5. CARBOPLATIN [Suspect]
     Active Substance: CARBOPLATIN
     Indication: Diffuse large B-cell lymphoma
  6. IFOSFAMIDE [Suspect]
     Active Substance: IFOSFAMIDE
     Indication: Diffuse large B-cell lymphoma
  7. VIREAD [Concomitant]
     Active Substance: TENOFOVIR DISOPROXIL FUMARATE
  8. LENOGRASTIM [Concomitant]
     Active Substance: LENOGRASTIM
  9. ATORVASTATIN CALCIUM [Concomitant]
     Active Substance: ATORVASTATIN CALCIUM
  10. EZETIMIBE [Concomitant]
     Active Substance: EZETIMIBE
  11. XYZAL [Concomitant]
     Active Substance: LEVOCETIRIZINE DIHYDROCHLORIDE
  12. TEGOPRAZAN [Concomitant]
     Active Substance: TEGOPRAZAN
  13. SULFAMETHOXAZOLE [Concomitant]
     Active Substance: SULFAMETHOXAZOLE
  14. TRIMETHOPRIM [Concomitant]
     Active Substance: TRIMETHOPRIM

REACTIONS (7)
  - Disease progression [Fatal]
  - Diffuse large B-cell lymphoma [Fatal]
  - Pneumonia [Fatal]
  - Product use issue [Unknown]
  - Underdose [Unknown]
  - Intentional dose omission [Unknown]
  - Off label use [Unknown]
